FAERS Safety Report 14699349 (Version 1)
Quarter: 2018Q1

REPORT INFORMATION
  Report Type: Spontaneous
  Country: US (occurrence: US)
  Receive Date: 20180329
  Receipt Date: 20180329
  Transmission Date: 20180509
  Serious: Yes (Hospitalization)
  Sender: FDA-Public Use
  Company Number: None

PATIENT
  Sex: Female

DRUGS (5)
  1. GILENYA [Suspect]
     Active Substance: FINGOLIMOD HYDROCHLORIDE
     Indication: MULTIPLE SCLEROSIS
     Route: 048
     Dates: start: 20170601
  2. DIAZEPAM, IBUPROFEN [Concomitant]
  3. OMEPRAZOLE, VITAMIN C [Concomitant]
  4. VITAMIN D3, ALBUTEROL [Concomitant]
  5. VITAMIN D3, CARBAMAZEPIN [Concomitant]

REACTIONS (1)
  - Hospitalisation [None]
